FAERS Safety Report 14933150 (Version 2)
Quarter: 2018Q3

REPORT INFORMATION
  Report Type: Report from Study
  Country: IL (occurrence: IL)
  Receive Date: 20180524
  Receipt Date: 20180725
  Transmission Date: 20181010
  Serious: Yes (Hospitalization, Other)
  Sender: FDA-Public Use
  Company Number: IL-IPSEN BIOPHARMACEUTICALS, INC.-2018-03322

PATIENT
  Sex: Female

DRUGS (2)
  1. INSULIN [Concomitant]
     Active Substance: INSULIN NOS
     Indication: DIABETES MELLITUS
  2. SOMATULINE AUTOGEL 120MG [Suspect]
     Active Substance: LANREOTIDE ACETATE
     Indication: NEUROENDOCRINE TUMOUR
     Dosage: 120 MG
     Route: 065
     Dates: start: 20160417

REACTIONS (11)
  - Metastases to liver [Unknown]
  - Paranoia [Not Recovered/Not Resolved]
  - Renal cyst [Unknown]
  - Restlessness [Not Recovered/Not Resolved]
  - Ulcer [Unknown]
  - Cholecystitis acute [Recovered/Resolved]
  - Cognitive disorder [Not Recovered/Not Resolved]
  - Cholelithiasis [Recovered/Resolved]
  - Decubitus ulcer [Unknown]
  - Cerebral infarction [Unknown]
  - Depression [Not Recovered/Not Resolved]
